FAERS Safety Report 5152634-7 (Version None)
Quarter: 2006Q4

REPORT INFORMATION
  Report Type: 
  Country: None (occurrence: None)
  Receive Date: 20061109
  Receipt Date: 20061102
  Transmission Date: 20070319
  Serious: Yes (Hospitalization)
  Sender: FDA-Public Use
  Company Number: TPA2006A01946

PATIENT
  Age: 62 Year
  Sex: Female
  Weight: 144.2439 kg

DRUGS (11)
  1. ACTOS [Suspect]
     Indication: DIABETES MELLITUS NON-INSULIN-DEPENDENT
     Dosage: SEE IMAGE
     Route: 048
  2. XANAX [Concomitant]
  3. NORTRIPTYLINE (NORTRIPTYLINE) (25 MILLIGRAM, CAPSULES) [Concomitant]
  4. PAROXETINE [Concomitant]
  5. METFORMIN (METFORMIN) (500 MILLIGRAM, TABLETS) [Concomitant]
  6. STARLIX [Concomitant]
  7. DETROL (TOLTERODINE L-TARTRATE) (TABLETS) [Concomitant]
  8. FUROSEMIDE [Concomitant]
  9. KLOR-CON [Concomitant]
  10. LISINOPRIL [Concomitant]
  11. GLIMEPIRIDE [Concomitant]

REACTIONS (5)
  - OEDEMA [None]
  - PHARYNGOLARYNGEAL PAIN [None]
  - PNEUMONIA [None]
  - PULMONARY OEDEMA [None]
  - SWELLING [None]
